FAERS Safety Report 25690827 (Version 1)
Quarter: 2025Q3

REPORT INFORMATION
  Report Type: Spontaneous
  Country: US (occurrence: None)
  Receive Date: 20250817
  Receipt Date: 20250817
  Transmission Date: 20251021
  Serious: Yes (Other)
  Sender: FDA-CTU
  Company Number: None

PATIENT
  Age: 74 Year
  Sex: Male
  Weight: 105.97 kg

DRUGS (2)
  1. REPATHA [Suspect]
     Active Substance: EVOLOCUMAB
     Indication: Dyslipidaemia
     Route: 058
     Dates: start: 20250601, end: 20250811
  2. MOUNJARO [Concomitant]
     Active Substance: TIRZEPATIDE
     Dates: start: 20250328

REACTIONS (6)
  - Myalgia [None]
  - Nausea [None]
  - Blood creatine phosphokinase increased [None]
  - C-reactive protein increased [None]
  - Malaise [None]
  - Hypersensitivity [None]

NARRATIVE: CASE EVENT DATE: 20250811
